FAERS Safety Report 7545973-3 (Version None)
Quarter: 2011Q2

REPORT INFORMATION
  Report Type: 
  Country: None (occurrence: None)
  Receive Date: 20110614
  Receipt Date: 20110607
  Transmission Date: 20111010
  Serious: Yes (Hospitalization, Other)
  Sender: FDA-Public Use
  Company Number: CO-PFIZER INC-2011106695

PATIENT
  Age: 18 Year
  Sex: Male

DRUGS (3)
  1. CLOBAZAM [Concomitant]
     Indication: PARTIAL SEIZURES
     Dosage: 20 MG, 3X/DAY (EVERY 8 HOURS)
     Route: 048
  2. TOPIRAMATE [Concomitant]
     Dosage: 50 MG, 3X/DAY (EVERY 8 HOURS)
     Route: 048
  3. PHENYTOIN SODIUM CAP [Suspect]
     Indication: PARTIAL SEIZURES
     Dosage: 100 MG IN THE MORNING, 100 MG IN THE AFTERNOON, 200 MG AT NIGHT
     Route: 048
     Dates: start: 20100605

REACTIONS (1)
  - CONVULSION [None]
